FAERS Safety Report 15504752 (Version 1)
Quarter: 2018Q4

REPORT INFORMATION
  Report Type: Spontaneous
  Country: US (occurrence: US)
  Receive Date: 20181016
  Receipt Date: 20181016
  Transmission Date: 20190205
  Serious: No
  Sender: FDA-Public Use
  Company Number: US-SA-2018SA283225

PATIENT
  Sex: Male

DRUGS (6)
  1. AUBAGIO [Suspect]
     Active Substance: TERIFLUNOMIDE
     Dosage: 1 DF, QD
     Route: 048
  2. LISINOPRIL H [Concomitant]
     Dosage: 20-12.5 M
  3. MECLIZINE [MECLOZINE] [Concomitant]
     Dosage: 25 MG TABLET
  4. ALLOPURINOL. [Concomitant]
     Active Substance: ALLOPURINOL
     Dosage: 300 MG, TABLET
  5. BACLOFEN. [Concomitant]
     Active Substance: BACLOFEN
     Dosage: 10 MG, TABLET
  6. VITAMIN D [COLECALCIFEROL] [Concomitant]
     Dosage: CAPSULE 2000 UNIT

REACTIONS (1)
  - Pain in extremity [Not Recovered/Not Resolved]
